FAERS Safety Report 4966483-3 (Version None)
Quarter: 2006Q2

REPORT INFORMATION
  Report Type: 
  Country: None (occurrence: None)
  Receive Date: 20060407
  Receipt Date: 20060309
  Transmission Date: 20061013
  Serious: Yes (Death, Other)
  Sender: FDA-Public Use
  Company Number: JP-SANOFI-SYNTHELABO-F01200600705

PATIENT
  Sex: Female
  Weight: 49 kg

DRUGS (13)
  1. OXALIPLATIN [Suspect]
     Indication: COLON CANCER
     Dosage: 125 MG/BODY=86.2 MG/M2
     Route: 042
     Dates: start: 20051031, end: 20051031
  2. FLUOROURACIL [Suspect]
     Dosage: 600 MG/BODY=413.8 MG/M2 IN BOLUS THEN 900 MG/BODY=620.7 MG/M2 AS CONTINUOUS INFUSION
     Route: 042
     Dates: start: 20051031, end: 20051101
  3. CALCIUM LEVOFOLINATE [Suspect]
     Dosage: 150 MG/BODY=103.4 MG/M2
     Route: 042
     Dates: start: 20051031, end: 20051101
  4. PAZUFLOXACIN MESILATE [Concomitant]
     Route: 042
     Dates: start: 20051105, end: 20051107
  5. TIENAM [Concomitant]
     Route: 042
     Dates: start: 20051108, end: 20060122
  6. HABEKACIN [Concomitant]
     Route: 042
     Dates: start: 20051112, end: 20051116
  7. VENOGLOBULIN [Concomitant]
     Route: 042
     Dates: start: 20051115, end: 20060122
  8. TEICOPLANIN [Concomitant]
     Route: 042
     Dates: start: 20051117, end: 20051120
  9. FOSFOMYCIN [Concomitant]
     Route: 042
     Dates: start: 20051209, end: 20051211
  10. CEFMETAZON [Concomitant]
     Route: 042
     Dates: start: 20060112, end: 20060120
  11. MIRACLID [Concomitant]
     Dosage: 100000 DF
     Route: 042
     Dates: start: 20060120, end: 20060122
  12. CATABON [Concomitant]
     Route: 042
     Dates: start: 20060120, end: 20060122
  13. GABEXATE MESILATE [Concomitant]
     Route: 042
     Dates: start: 20060120, end: 20060122

REACTIONS (5)
  - HAEMOGLOBIN DECREASED [None]
  - LEUKOPENIA [None]
  - NEUROPATHY PERIPHERAL [None]
  - NEUTROPENIA [None]
  - THROMBOCYTOPENIA [None]
